FAERS Safety Report 13392287 (Version 1)
Quarter: 2017Q1

REPORT INFORMATION
  Report Type: Spontaneous
  Country: US (occurrence: US)
  Receive Date: 20170331
  Receipt Date: 20170331
  Transmission Date: 20170429
  Serious: No
  Sender: FDA-Public Use
  Company Number: US-MYLANLABS-2016M1034412

PATIENT
  Age: 46 Year
  Sex: Female
  Weight: 99.77 kg

DRUGS (5)
  1. LUVOX [Concomitant]
     Active Substance: FLUVOXAMINE MALEATE
     Indication: DEPRESSION
     Dosage: 50 MG, BID
     Route: 048
  2. NEURONTIN [Concomitant]
     Active Substance: GABAPENTIN
     Dosage: UNK UNK, TID
     Route: 048
  3. FENTANYL TRANSDERMAL SYSTEM [Suspect]
     Active Substance: FENTANYL
     Indication: PAIN
     Dosage: 25 ?G, QH, CHANGE Q72H
     Route: 062
     Dates: start: 2007
  4. BUSPAR [Concomitant]
     Active Substance: BUSPIRONE HYDROCHLORIDE
     Indication: DEPRESSION
     Dosage: UNK UNK, TID
     Route: 048
  5. OXYCODONE W/APAP [Concomitant]
     Active Substance: ACETAMINOPHEN\OXYCODONE HYDROCHLORIDE
     Indication: PAIN
     Dosage: 5/3 MG, TID, PRN
     Route: 048

REACTIONS (2)
  - Drug withdrawal syndrome [Recovered/Resolved]
  - Drug ineffective [Recovered/Resolved]

NARRATIVE: CASE EVENT DATE: 20160803
